FAERS Safety Report 9088827 (Version 1)
Quarter: 2013Q1

REPORT INFORMATION
  Report Type: Report from Study
  Country: US (occurrence: US)
  Receive Date: 20130201
  Receipt Date: 20130201
  Transmission Date: 20140127
  Serious: No
  Sender: FDA-Public Use
  Company Number: US-ABBOTT-12P-163-1028988-00

PATIENT
  Sex: Female
  Weight: 97.61 kg

DRUGS (6)
  1. HUMIRA [Suspect]
     Indication: PSORIASIS
     Route: 058
     Dates: start: 201110, end: 201202
  2. HUMIRA [Suspect]
     Dosage: 1 DOSE
     Route: 058
     Dates: start: 201203, end: 201203
  3. HUMIRA [Suspect]
     Route: 058
     Dates: start: 20121219, end: 20121219
  4. HUMIRA [Suspect]
     Route: 058
     Dates: start: 20121226
  5. OXYCODONE [Concomitant]
     Indication: PAIN
  6. MORPHINE [Concomitant]
     Indication: PAIN

REACTIONS (8)
  - Gait disturbance [Not Recovered/Not Resolved]
  - Gastroenteritis viral [Recovered/Resolved]
  - Vomiting [Recovered/Resolved]
  - Psoriasis [Recovered/Resolved]
  - Pustular psoriasis [Recovered/Resolved]
  - Psoriasis [Not Recovered/Not Resolved]
  - Nail discolouration [Not Recovered/Not Resolved]
  - Onychomadesis [Recovered/Resolved]
